FAERS Safety Report 24425364 (Version 2)
Quarter: 2024Q4

REPORT INFORMATION
  Report Type: Spontaneous
  Country: RO (occurrence: RO)
  Receive Date: 20241011
  Receipt Date: 20241017
  Transmission Date: 20250114
  Serious: Yes (Hospitalization, Other)
  Sender: ACCORD
  Company Number: RO-Accord-449884

PATIENT
  Age: 1 Year
  Sex: Female

DRUGS (9)
  1. TACROLIMUS [Suspect]
     Active Substance: TACROLIMUS
     Indication: Immunosuppressant drug therapy
  2. ALBUMIN HUMAN [Concomitant]
     Active Substance: ALBUMIN HUMAN
  3. EPTACOG ALFA [Concomitant]
     Active Substance: COAGULATION FACTOR VIIA RECOMBINANT HUMAN
  4. FUROSEMIDE [Concomitant]
     Active Substance: FUROSEMIDE
  5. DEXTROSE [Concomitant]
     Active Substance: DEXTROSE MONOHYDRATE
     Dosage: 10-12 MG/KG/MIN
  6. METHYLPREDNISOLONE [Concomitant]
     Active Substance: METHYLPREDNISOLONE
     Indication: Immunosuppressant drug therapy
  7. PROTHROMBINKOMPLEX-KONZENTRAT [Concomitant]
  8. SPIRONOLACTONE [Concomitant]
     Active Substance: SPIRONOLACTONE
  9. DEXTROSE [Concomitant]
     Active Substance: DEXTROSE MONOHYDRATE
     Dosage: 10-12 MG/KG/MIN

REACTIONS (6)
  - Gastroenteritis rotavirus [Unknown]
  - Renal tubular acidosis [Recovered/Resolved]
  - Cytomegalovirus infection [Recovered/Resolved]
  - Epstein-Barr virus infection [Recovering/Resolving]
  - Post transplant lymphoproliferative disorder [Unknown]
  - Immunosuppressant drug level increased [Unknown]
